FAERS Safety Report 18729254 (Version 1)
Quarter: 2021Q1

REPORT INFORMATION
  Report Type: Spontaneous
  Country: US (occurrence: US)
  Receive Date: 20210109
  Receipt Date: 20210109
  Transmission Date: 20210419
  Serious: Yes (Other)
  Sender: FDA-Public Use
  Company Number: None

PATIENT
  Age: 52 Year
  Sex: Female
  Weight: 75 kg

DRUGS (2)
  1. VITAMIN D [Concomitant]
     Active Substance: VITAMIN D NOS
  2. ROSUVASTATIN. [Suspect]
     Active Substance: ROSUVASTATIN
     Indication: BLOOD CHOLESTEROL INCREASED
     Dosage: ?          QUANTITY:1 DF DOSAGE FORM;?
     Route: 048
     Dates: start: 20200210, end: 20201117

REACTIONS (9)
  - Tremor [None]
  - Depression [None]
  - Therapy cessation [None]
  - Diarrhoea [None]
  - Tendonitis [None]
  - Insomnia [None]
  - Myalgia [None]
  - Fatigue [None]
  - Nasopharyngitis [None]

NARRATIVE: CASE EVENT DATE: 20200810
